FAERS Safety Report 7544507-7 (Version None)
Quarter: 2011Q2

REPORT INFORMATION
  Report Type: 
  Country: None (occurrence: None)
  Receive Date: 20110613
  Receipt Date: 20110606
  Transmission Date: 20111010
  Serious: Yes (Hospitalization, Other)
  Sender: FDA-Public Use
  Company Number: US-MERCK-1103USA00640

PATIENT
  Age: 68 Year
  Sex: Female
  Weight: 83 kg

DRUGS (10)
  1. ASPIRIN [Concomitant]
     Route: 048
  2. CALCIUM (UNSPECIFIED) [Concomitant]
     Route: 048
  3. FLONASE [Concomitant]
     Route: 065
  4. CLONIDINE [Concomitant]
     Route: 048
  5. FOSAMAX [Suspect]
     Indication: OSTEOPOROSIS
     Route: 048
     Dates: start: 20050101, end: 20080207
  6. FOSAMAX [Suspect]
     Route: 048
     Dates: start: 20080312, end: 20100929
  7. ALENDRONATE SODIUM [Suspect]
     Route: 048
     Dates: start: 20080312, end: 20100929
  8. CALCIUM CARBONATE [Concomitant]
     Route: 065
     Dates: start: 19990101
  9. DYAZIDE [Concomitant]
     Route: 065
  10. LISINOPRIL [Concomitant]
     Route: 065

REACTIONS (13)
  - PAIN IN EXTREMITY [None]
  - OSTEOPENIA [None]
  - VITAMIN D DEFICIENCY [None]
  - FEMUR FRACTURE [None]
  - HIP FRACTURE [None]
  - ANKLE FRACTURE [None]
  - HYPERTENSION [None]
  - FALL [None]
  - BONE DENSITY DECREASED [None]
  - CONTUSION [None]
  - ARTHROPATHY [None]
  - CALCIUM DEFICIENCY [None]
  - TIBIA FRACTURE [None]
